FAERS Safety Report 14924750 (Version 1)
Quarter: 2018Q2

REPORT INFORMATION
  Report Type: Report from Study
  Country: ES (occurrence: ES)
  Receive Date: 20180522
  Receipt Date: 20180522
  Transmission Date: 20180711
  Serious: Yes (Life-Threatening, Hospitalization)
  Sender: FDA-Public Use
  Company Number: ES-TEVA-2018-ES-894844

PATIENT
  Age: 82 Year
  Sex: Male

DRUGS (6)
  1. DILTIAZEM HIDROCLORURO (3735CH) [Suspect]
     Active Substance: DILTIAZEM HYDROCHLORIDE
     Indication: ATRIAL FIBRILLATION
     Dosage: 120 MILLIGRAM DAILY;
     Route: 048
     Dates: start: 2011
  2. ENALAPRIL MALEATO (2142MA) [Concomitant]
     Active Substance: ENALAPRIL MALEATE
     Indication: HYPERTENSION
     Dosage: 20 MILLIGRAM DAILY;
     Route: 048
     Dates: end: 20160916
  3. SIMVASTATINA (1023A) [Suspect]
     Active Substance: SIMVASTATIN
     Indication: HYPERLIPIDAEMIA
     Dosage: 20 MILLIGRAM DAILY;
     Route: 048
     Dates: start: 2015
  4. IBUPROFEN. [Suspect]
     Active Substance: IBUPROFEN
     Dosage: 1.8 GRAM DAILY;
     Route: 048
     Dates: start: 20160908, end: 20160916
  5. SINTROM [Suspect]
     Active Substance: ACENOCOUMAROL
     Indication: ATRIAL FIBRILLATION
     Route: 048
     Dates: start: 20140211, end: 20160916
  6. TERAZOSINA HIDROCLORURO (2402CH) [Concomitant]
     Dosage: 10 MILLIGRAM DAILY;
     Route: 048
     Dates: start: 201408, end: 20160916

REACTIONS (1)
  - Lower gastrointestinal haemorrhage [Recovered/Resolved]

NARRATIVE: CASE EVENT DATE: 20160913
